FAERS Safety Report 4815922-7 (Version None)
Quarter: 2005Q4

REPORT INFORMATION
  Report Type: 
  Country: None (occurrence: None)
  Receive Date: 20051031
  Receipt Date: 20051019
  Transmission Date: 20060501
  Serious: Yes (Other)
  Sender: FDA-Public Use
  Company Number: GB-BRISTOL-MYERS SQUIBB COMPANY-13150347

PATIENT
  Age: 72 Year
  Sex: Female
  Weight: 65 kg

DRUGS (18)
  1. AMPHOTERICIN B [Suspect]
     Indication: ABDOMINAL SEPSIS
     Route: 042
     Dates: end: 20050919
  2. ZYVOX [Suspect]
     Indication: ABDOMINAL SEPSIS
     Route: 042
     Dates: start: 20050910, end: 20050919
  3. VANCOMYCIN [Concomitant]
  4. TAZOCIN [Concomitant]
  5. FUROSEMIDE [Concomitant]
  6. HEPARIN [Concomitant]
  7. ACETAMINOPHEN [Concomitant]
  8. LANSOPRAZOLE [Concomitant]
  9. METOCLOPRAMIDE [Concomitant]
  10. CITALOPRAM [Concomitant]
  11. METRONIDAZOLE [Concomitant]
  12. PANTOPRAZOLE [Concomitant]
  13. DOBUTAMINE HCL [Concomitant]
  14. CYCLIZINE [Concomitant]
  15. MORPHINE [Concomitant]
  16. NORADRENALINE [Concomitant]
  17. TAMOXIFEN [Concomitant]
  18. ANASTROZOLE [Concomitant]

REACTIONS (1)
  - HEPATOTOXICITY [None]
